FAERS Safety Report 26182537 (Version 2)
Quarter: 2025Q4

REPORT INFORMATION
  Report Type: Report from Study
  Country: US (occurrence: US)
  Receive Date: 20251221
  Receipt Date: 20251225
  Transmission Date: 20260118
  Serious: No
  Sender: SANOFI AVENTIS
  Company Number: US-SA-2025SA377259

PATIENT
  Sex: Female

DRUGS (6)
  1. DUPIXENT [Suspect]
     Active Substance: DUPILUMAB
     Indication: Neurodermatitis
     Dosage: 600 MG, 1X
     Route: 058
  2. ATORVASTATIN CALCIUM [Concomitant]
     Active Substance: ATORVASTATIN CALCIUM
  3. ESCITALOPRAM OXALATE [Concomitant]
     Active Substance: ESCITALOPRAM OXALATE
  4. FAMOTIDINE [Concomitant]
     Active Substance: FAMOTIDINE
  5. LEVOTHYROXINE [Concomitant]
     Active Substance: LEVOTHYROXINE
  6. OMEPRAZOLE [Concomitant]
     Active Substance: OMEPRAZOLE

REACTIONS (2)
  - Accidental exposure to product [Unknown]
  - Exposure via skin contact [Unknown]
